FAERS Safety Report 14267603 (Version 1)
Quarter: 2017Q4

REPORT INFORMATION
  Report Type: Spontaneous
  Country: US (occurrence: US)
  Receive Date: 20171210
  Receipt Date: 20171210
  Transmission Date: 20180321
  Serious: Yes (Death)
  Sender: FDA-Public Use
  Company Number: None

PATIENT
  Age: 80 Year
  Sex: Male

DRUGS (1)
  1. AMIODARONE [Suspect]
     Active Substance: AMIODARONE
     Indication: ATRIAL FIBRILLATION
     Dates: start: 20111221, end: 20120120

REACTIONS (4)
  - Liver injury [None]
  - Pulmonary toxicity [None]
  - Adverse drug reaction [None]
  - Traumatic lung injury [None]

NARRATIVE: CASE EVENT DATE: 20111221
